FAERS Safety Report 9542222 (Version 2)
Quarter: 2014Q1

REPORT INFORMATION
  Report Type: Spontaneous
  Country: US (occurrence: None)
  Receive Date: 20130918
  Receipt Date: 20140318
  Transmission Date: 20141002
  Serious: Yes (Other)
  Sender: FDA-Public Use
  Company Number: 2013CT000060

PATIENT
  Age: 33 Year
  Sex: Male

DRUGS (1)
  1. KORLYM [Suspect]
     Indication: CUSHING^S SYNDROME
     Route: 048
     Dates: start: 20130708

REACTIONS (28)
  - Erythema [None]
  - Blood potassium decreased [None]
  - Dehydration [None]
  - Muscle spasms [None]
  - Fatigue [None]
  - Somnolence [None]
  - Hyperhidrosis [None]
  - Erectile dysfunction [None]
  - Libido decreased [None]
  - Headache [None]
  - Hypertrichosis [None]
  - Rash macular [None]
  - Pollakiuria [None]
  - Thirst [None]
  - Frequent bowel movements [None]
  - Hypoaesthesia [None]
  - Depression [None]
  - Crying [None]
  - Cortisol free urine increased [None]
  - Muscular weakness [None]
  - Ejaculation disorder [None]
  - Feeling abnormal [None]
  - Hallucination [None]
  - Lethargy [None]
  - Malaise [None]
  - Tachyphrenia [None]
  - Burning sensation [None]
  - Unevaluable event [None]
